FAERS Safety Report 8870103 (Version 1)
Quarter: 2012Q4

REPORT INFORMATION
  Report Type: 
  Country: US (occurrence: US)
  Receive Date: 20121027
  Receipt Date: 20121027
  Transmission Date: 20130627
  Serious: Yes (Other)
  Sender: FDA-Public Use
  Company Number: US-US-EMD SERONO, INC.-7168030

PATIENT
  Sex: Female

DRUGS (2)
  1. REBIF [Suspect]
     Indication: PRODUCT USED FOR UNKNOWN INDICATION
     Dates: start: 20120331, end: 201209
  2. REBIF [Suspect]
     Route: 058
     Dates: start: 201209, end: 201210

REACTIONS (3)
  - Skin ulcer [Unknown]
  - Rash [Not Recovered/Not Resolved]
  - Fatigue [Recovering/Resolving]
